FAERS Safety Report 7826286-9 (Version None)
Quarter: 2011Q4

REPORT INFORMATION
  Report Type: 
  Country: None (occurrence: None)
  Receive Date: 20111020
  Receipt Date: 20111013
  Transmission Date: 20120403
  Serious: No
  Sender: FDA-Public Use
  Company Number: US-BIOGENIDEC-2011BI037692

PATIENT
  Age: 51 Year
  Sex: Female

DRUGS (3)
  1. TYSABRI [Suspect]
     Indication: MULTIPLE SCLEROSIS
     Route: 042
     Dates: start: 20071105
  2. SYNTHROID [Concomitant]
     Indication: BASEDOW'S DISEASE
  3. LEVOXYL [Concomitant]
     Indication: BASEDOW'S DISEASE

REACTIONS (3)
  - THYROID NEOPLASM [None]
  - THYROID MASS [None]
  - GOITRE [None]
